FAERS Safety Report 8431087-7 (Version None)
Quarter: 2012Q2

REPORT INFORMATION
  Report Type: 
  Country: None (occurrence: None)
  Receive Date: 20120612
  Receipt Date: 20120608
  Transmission Date: 20120825
  Serious: No
  Sender: FDA-Public Use
  Company Number: US-PFIZER INC-2012140095

PATIENT

DRUGS (8)
  1. HYDROCODONE [Suspect]
     Dosage: UNK
  2. PERCOCET [Suspect]
     Dosage: UNK
  3. PRAVASTATIN [Suspect]
     Dosage: UNK
  4. NEOSPORIN [Suspect]
     Dosage: UNK
  5. OXYCODONE HYDROCHLORIDE [Suspect]
     Dosage: UNK
  6. LYRICA [Suspect]
     Dosage: UNK
  7. TRAMADOL HCL [Suspect]
     Dosage: UNK
  8. METOPROLOL [Suspect]
     Dosage: UNK

REACTIONS (1)
  - DRUG HYPERSENSITIVITY [None]
